FAERS Safety Report 4836792-7 (Version None)
Quarter: 2005Q4

REPORT INFORMATION
  Report Type: 
  Country: None (occurrence: None)
  Receive Date: 20051123
  Receipt Date: 20051107
  Transmission Date: 20060501
  Serious: Yes (Disabling)
  Sender: FDA-Public Use
  Company Number: GB-ABBOTT-05P-167-0316955-00

PATIENT
  Sex: Female

DRUGS (2)
  1. ERYTHROMYCIN [Suspect]
     Indication: PHARYNGITIS
     Route: 048
  2. ERYTHROMYCIN [Suspect]
     Indication: LYMPH GLAND INFECTION

REACTIONS (4)
  - DEAFNESS UNILATERAL [None]
  - HYPERACUSIS [None]
  - MIGRAINE [None]
  - TINNITUS [None]
